FAERS Safety Report 10356622 (Version 1)
Quarter: 2014Q3

REPORT INFORMATION
  Report Type: Spontaneous
  Country: US (occurrence: US)
  Receive Date: 20140801
  Receipt Date: 20140801
  Transmission Date: 20150326
  Serious: Yes (Other)
  Sender: FDA-Public Use
  Company Number: US-MALLINCKRODT-T201402936

PATIENT
  Age: 66 Year
  Sex: Female

DRUGS (1)
  1. SODIUM IODIDE I 131 [Suspect]
     Active Substance: SODIUM IODIDE I-131
     Indication: METASTATIC NEOPLASM
     Dosage: 200 MCI, SINGLE
     Route: 065

REACTIONS (1)
  - Brain oedema [Recovering/Resolving]
